FAERS Safety Report 8478927-3 (Version None)
Quarter: 2012Q2

REPORT INFORMATION
  Report Type: 
  Country: None (occurrence: None)
  Receive Date: 20120629
  Receipt Date: 20120601
  Transmission Date: 20120825
  Serious: Yes (Hospitalization)
  Sender: FDA-Public Use
  Company Number: AU-ROCHE-1082806

PATIENT
  Sex: Female

DRUGS (4)
  1. LUCENTIS [Suspect]
     Route: 050
     Dates: start: 20120423
  2. PERINDOPRIL ERBUMINE [Concomitant]
  3. ASPIRIN [Concomitant]
  4. LUCENTIS [Suspect]
     Indication: MACULAR DEGENERATION
     Route: 050

REACTIONS (4)
  - CARDIAC DISORDER [None]
  - BLOOD PRESSURE ABNORMAL [None]
  - DIZZINESS [None]
  - MALAISE [None]
